FAERS Safety Report 9260658 (Version 1)
Quarter: 2013Q2

REPORT INFORMATION
  Report Type: Spontaneous
  Country: US (occurrence: US)
  Receive Date: 20130429
  Receipt Date: 20130429
  Transmission Date: 20140414
  Serious: Yes (Hospitalization)
  Sender: FDA-Public Use
  Company Number: US-JNJFOC-20130201158

PATIENT
  Age: 72 Year
  Sex: Female
  Weight: 80.29 kg

DRUGS (6)
  1. REMICADE [Suspect]
     Indication: RHEUMATOID ARTHRITIS
     Route: 042
     Dates: start: 20130115
  2. METHOTREXATE [Concomitant]
     Indication: RHEUMATOID ARTHRITIS
     Route: 065
  3. LYRICA [Concomitant]
     Indication: RHEUMATOID ARTHRITIS
     Route: 065
  4. NEXIUM [Concomitant]
     Route: 065
  5. FLEXERIL [Concomitant]
     Route: 065
  6. ATENOLOL [Concomitant]
     Route: 065

REACTIONS (1)
  - Loss of consciousness [Recovered/Resolved]
